FAERS Safety Report 4818708-2 (Version None)
Quarter: 2005Q4

REPORT INFORMATION
  Report Type: 
  Country: None (occurrence: None)
  Receive Date: 20051102
  Receipt Date: 20030113
  Transmission Date: 20060501
  Serious: Yes (Hospitalization, Disabling, Other)
  Sender: FDA-Public Use
  Company Number: US-MERCK-0301USA01106

PATIENT
  Age: 40 Year
  Sex: Male
  Weight: 105 kg

DRUGS (6)
  1. VIOXX [Suspect]
     Indication: POLYARTHRITIS
     Route: 048
     Dates: start: 20020708, end: 20020824
  2. VIOXX [Suspect]
     Indication: BURSITIS
     Route: 048
     Dates: start: 20020708, end: 20020824
  3. MECLIZINE [Concomitant]
     Route: 065
  4. CHLORPHENIRAMINE MALEATE AND PSEUDOEPHEDRINE HCL [Concomitant]
     Route: 065
  5. ACIPHEX [Concomitant]
     Route: 065
  6. LISINOPRIL [Concomitant]
     Route: 065

REACTIONS (24)
  - ANXIETY [None]
  - BACK INJURY [None]
  - BENIGN PROSTATIC HYPERPLASIA [None]
  - BLADDER NECK SCLEROSIS [None]
  - CEREBROVASCULAR ACCIDENT [None]
  - CHEST PAIN [None]
  - DIZZINESS [None]
  - HAEMOLYSIS [None]
  - HAEMORRHOIDAL HAEMORRHAGE [None]
  - HYPERKALAEMIA [None]
  - HYPERLIPIDAEMIA [None]
  - HYPERSENSITIVITY [None]
  - HYPERTENSION [None]
  - LIVER FUNCTION TEST ABNORMAL [None]
  - OEDEMA PERIPHERAL [None]
  - PALPITATIONS [None]
  - RENAL FAILURE ACUTE [None]
  - RHEUMATOID ARTHRITIS [None]
  - RHINITIS ALLERGIC [None]
  - STRESS [None]
  - TOOTH ABSCESS [None]
  - URETHRAL STENOSIS [None]
  - URTICARIA [None]
  - VERTIGO [None]
